FAERS Safety Report 8340881-2 (Version None)
Quarter: 2012Q2

REPORT INFORMATION
  Report Type: 
  Country: None (occurrence: None)
  Receive Date: 20120503
  Receipt Date: 20120326
  Transmission Date: 20120825
  Serious: Yes (Other)
  Sender: FDA-Public Use
  Company Number: EUS-2012-00180

PATIENT
  Age: 28 Year
  Sex: Female

DRUGS (5)
  1. VINCRISTINE [Concomitant]
  2. ASPARAGINASE (UNSPECIFIED) (ASPARAGINASE) [Suspect]
     Indication: ACUTE LYMPHOCYTIC LEUKAEMIA
     Dosage: 3000 U/M2 ON DAY 9,11,13,16,18 AND 20
  3. CYCLOPHOSPHAMIDE [Concomitant]
  4. DAUNORUBICIN HCL [Concomitant]
  5. PREDNISONE TAB [Concomitant]

REACTIONS (11)
  - COAGULOPATHY [None]
  - POSTERIOR REVERSIBLE ENCEPHALOPATHY SYNDROME [None]
  - LOSS OF CONSCIOUSNESS [None]
  - ILEUS PARALYTIC [None]
  - SOMNOLENCE [None]
  - BLOOD PRESSURE INCREASED [None]
  - CENTRAL NERVOUS SYSTEM LESION [None]
  - HEPATIC ENZYME INCREASED [None]
  - MUSCULAR WEAKNESS [None]
  - GAIT DISTURBANCE [None]
  - BONE MARROW TRANSPLANT [None]
